FAERS Safety Report 23712423 (Version 1)
Quarter: 2024Q2

REPORT INFORMATION
  Report Type: Spontaneous
  Country: US (occurrence: None)
  Receive Date: 20240404
  Receipt Date: 20240404
  Transmission Date: 20240715
  Serious: No
  Sender: FDA-Public Use
  Company Number: None

PATIENT
  Age: 72 Year
  Sex: Male

DRUGS (1)
  1. XDEMVY [Suspect]
     Active Substance: LOTILANER
     Indication: Demodex blepharitis
     Dosage: 20 PERCENT - % BID OPHTHALMIC?
     Route: 047
     Dates: start: 20240301, end: 20240311

REACTIONS (3)
  - Therapy cessation [None]
  - Eye pain [None]
  - Eye pruritus [None]

NARRATIVE: CASE EVENT DATE: 20240301
